FAERS Safety Report 7900773-7 (Version None)
Quarter: 2011Q4

REPORT INFORMATION
  Report Type: 
  Country: None (occurrence: None)
  Receive Date: 20111108
  Receipt Date: 20111108
  Transmission Date: 20120403
  Serious: Yes (Hospitalization)
  Sender: FDA-Public Use
  Company Number: None

PATIENT
  Age: 69 Year
  Sex: Male
  Weight: 56.3 kg

DRUGS (22)
  1. SIMVASTATIN [Concomitant]
     Route: 048
  2. GABAPENTIN [Concomitant]
     Route: 048
  3. PERCOCET [Concomitant]
     Route: 048
  4. STRATTERA [Concomitant]
     Route: 048
  5. FISH OIL [Concomitant]
     Route: 048
  6. LISINOPRIL [Concomitant]
     Route: 048
  7. DOXYCYCLINE [Concomitant]
     Route: 048
  8. CYMBALTA [Concomitant]
     Route: 048
  9. DILTIAZEM [Concomitant]
     Route: 048
  10. KLOR-CON [Concomitant]
     Route: 048
  11. VITAMIN D [Concomitant]
     Route: 048
  12. VITAMIN B-12 [Concomitant]
     Route: 058
  13. FINASTERIDE [Concomitant]
     Route: 048
  14. RAPAFLO [Concomitant]
     Route: 048
  15. CIPRO [Concomitant]
     Route: 048
  16. TESTOSTERONE [Concomitant]
     Route: 051
  17. ASPIRIN [Concomitant]
     Route: 048
  18. HUMALOG [Concomitant]
  19. LANTUS [Concomitant]
  20. MULTI-VITAMIN [Concomitant]
     Route: 048
  21. CA, MG, ZINC SUPPLEMENTS [Concomitant]
  22. CIPRO [Suspect]
     Indication: URINARY TRACT INFECTION
     Dosage: 500 MG
     Route: 048
     Dates: start: 20110317, end: 20110323

REACTIONS (3)
  - MOBILITY DECREASED [None]
  - BALANCE DISORDER [None]
  - TENDON RUPTURE [None]
